FAERS Safety Report 9598228 (Version 1)
Quarter: 2013Q4

REPORT INFORMATION
  Report Type: Spontaneous
  Country: US (occurrence: US)
  Receive Date: 20131004
  Receipt Date: 20131004
  Transmission Date: 20140711
  Serious: No
  Sender: FDA-Public Use
  Company Number: US-AMGEN-USASP2013022936

PATIENT
  Age: 60 Year
  Sex: Male
  Weight: 113.38 kg

DRUGS (5)
  1. ENBREL [Suspect]
     Indication: PRODUCT USED FOR UNKNOWN INDICATION
     Dosage: 50 MG, QWK
     Route: 058
  2. METHOTREXATE [Concomitant]
     Dosage: 2.5 MG, UNK
  3. VITAMIN D3 [Concomitant]
     Dosage: 10000 UNIT, UNK
  4. FOLIC ACID [Concomitant]
     Dosage: 20 MG, UNK
  5. NEURONTIN [Concomitant]
     Dosage: 300 MG, UNK

REACTIONS (1)
  - Tonsillar hypertrophy [Unknown]
